FAERS Safety Report 7228104-9 (Version None)
Quarter: 2011Q1

REPORT INFORMATION
  Report Type: 
  Country: None (occurrence: None)
  Receive Date: 20110114
  Receipt Date: 20100204
  Transmission Date: 20110831
  Serious: Yes (Other)
  Sender: FDA-Public Use
  Company Number: US-PFIZER INC-2010021374

PATIENT
  Age: 22 Year
  Sex: Female

DRUGS (1)
  1. DOSTINEX [Suspect]
     Indication: PITUITARY TUMOUR BENIGN

REACTIONS (2)
  - PITUITARY TUMOUR BENIGN [None]
  - DRUG INEFFECTIVE [None]
